FAERS Safety Report 24665484 (Version 1)
Quarter: 2024Q4

REPORT INFORMATION
  Report Type: Spontaneous
  Country: US (occurrence: US)
  Receive Date: 20241126
  Receipt Date: 20241126
  Transmission Date: 20250115
  Serious: No
  Sender: BAYER HEALTHCARE LLC
  Company Number: US-BAYER-2024A167587

PATIENT
  Age: 8 Year
  Sex: Female

DRUGS (1)
  1. MIRALAX [Suspect]
     Active Substance: POLYETHYLENE GLYCOL 3350
     Indication: Gastrointestinal disorder
     Dosage: 1.5 CAPFULS
     Route: 048

REACTIONS (4)
  - Product use in unapproved indication [None]
  - Incorrect dose administered [Unknown]
  - Product use issue [Unknown]
  - Incorrect product administration duration [Unknown]
